FAERS Safety Report 7294152-6 (Version None)
Quarter: 2011Q1

REPORT INFORMATION
  Report Type: 
  Country: None (occurrence: None)
  Receive Date: 20110215
  Receipt Date: 20110210
  Transmission Date: 20110831
  Serious: Yes (Hospitalization)
  Sender: FDA-Public Use
  Company Number: CA-ABBOTT-10P-028-0624924-00

PATIENT
  Sex: Female
  Weight: 66.738 kg

DRUGS (5)
  1. BETNOVATE [Concomitant]
     Indication: PSORIASIS
     Dates: start: 19980528
  2. HUMIRA [Concomitant]
     Indication: PSORIASIS
     Dates: start: 20090529
  3. HUMIRA [Suspect]
     Indication: PSORIASIS
     Route: 058
     Dates: start: 20091111, end: 20091209
  4. TIAMOL [Concomitant]
     Indication: PSORIASIS
     Dates: start: 20071109
  5. LOPROX [Concomitant]
     Indication: PSORIASIS
     Dates: start: 20071109

REACTIONS (3)
  - ANORECTAL CELLULITIS [None]
  - TYPE 2 DIABETES MELLITUS [None]
  - ANAL ABSCESS [None]
